FAERS Safety Report 13092278 (Version 2)
Quarter: 2017Q1

REPORT INFORMATION
  Report Type: Spontaneous
  Country: US (occurrence: US)
  Receive Date: 20170106
  Receipt Date: 20170109
  Transmission Date: 20170428
  Serious: Yes (Hospitalization)
  Sender: FDA-Public Use
  Company Number: US-LUNDBECK-DKLU2024003

PATIENT
  Age: 38 Year
  Sex: Female

DRUGS (5)
  1. NORTHERA [Suspect]
     Active Substance: DROXIDOPA
     Route: 048
     Dates: end: 20161212
  2. NORTHERA [Suspect]
     Active Substance: DROXIDOPA
     Indication: AUTONOMIC NEUROPATHY
     Route: 048
     Dates: start: 20161130, end: 20161207
  3. NORTHERA [Suspect]
     Active Substance: DROXIDOPA
     Route: 048
     Dates: start: 201612
  4. CORLANOR [Concomitant]
     Active Substance: IVABRADINE HYDROCHLORIDE
     Indication: POSTURAL ORTHOSTATIC TACHYCARDIA SYNDROME
     Route: 065
  5. NORTHERA [Suspect]
     Active Substance: DROXIDOPA
     Indication: AUTONOMIC FAILURE SYNDROME
     Route: 048
     Dates: start: 20161207

REACTIONS (12)
  - Drug dose omission [Unknown]
  - Condition aggravated [Unknown]
  - Feeling abnormal [Unknown]
  - Blood pressure increased [Unknown]
  - Muscle disorder [Unknown]
  - Eye movement disorder [Unknown]
  - Gait disturbance [Unknown]
  - Muscular weakness [Unknown]
  - Vertigo [Unknown]
  - Blood potassium decreased [Recovering/Resolving]
  - Heart rate increased [Unknown]
  - Dizziness [Unknown]

NARRATIVE: CASE EVENT DATE: 20161207
